FAERS Safety Report 11590711 (Version 1)
Quarter: 2015Q4

REPORT INFORMATION
  Report Type: Report from Study
  Country: US (occurrence: US)
  Receive Date: 20151002
  Receipt Date: 20151002
  Transmission Date: 20160304
  Serious: No
  Sender: FDA-Public Use
  Company Number: US-ABBVIE-15P-163-1423738-00

PATIENT
  Age: 78 Year
  Sex: Male

DRUGS (2)
  1. AMANTADINE [Concomitant]
     Active Substance: AMANTADINE
     Indication: PRODUCT USED FOR UNKNOWN INDICATION
     Route: 065
  2. DUOPA [Suspect]
     Active Substance: CARBIDOPA\LEVODOPA
     Indication: PARKINSON^S DISEASE
     Dosage: TITRATION DOSE
     Route: 065
     Dates: start: 20150707

REACTIONS (8)
  - Posture abnormal [Unknown]
  - Device kink [Not Recovered/Not Resolved]
  - Device use error [Unknown]
  - Musculoskeletal stiffness [Not Recovered/Not Resolved]
  - Mobility decreased [Unknown]
  - Dizziness [Recovering/Resolving]
  - Device issue [Recovered/Resolved]
  - Condition aggravated [Unknown]

NARRATIVE: CASE EVENT DATE: 20150707
